FAERS Safety Report 17051564 (Version 13)
Quarter: 2022Q2

REPORT INFORMATION
  Report Type: Spontaneous
  Country: CA (occurrence: CA)
  Receive Date: 20191120
  Receipt Date: 20220411
  Transmission Date: 20220721
  Serious: Yes (Other)
  Sender: FDA-Public Use
  Company Number: CA-PFIZER INC-2019494419

PATIENT
  Age: 56 Year
  Sex: Female
  Weight: 113.38 kg

DRUGS (19)
  1. LORBRENA [Suspect]
     Active Substance: LORLATINIB
     Dosage: UNK
     Dates: start: 20191006, end: 20191006
  2. LORBRENA [Suspect]
     Active Substance: LORLATINIB
     Dosage: 100 MG, 1X/DAY
     Route: 048
     Dates: start: 201910
  3. ALECTINIB [Suspect]
     Active Substance: ALECTINIB
     Dosage: 450 MG, 2X/DAY
     Route: 048
     Dates: start: 20190605, end: 20190919
  4. DEXAMETHASONE [Concomitant]
     Active Substance: DEXAMETHASONE
     Dosage: 4 MG, 2X/DAY (FOR 4 WEEKS)
     Route: 048
     Dates: start: 20190610, end: 20190802
  5. DEXAMETHASONE [Concomitant]
     Active Substance: DEXAMETHASONE
     Dosage: 4 MG, 4X/DAY
     Route: 048
     Dates: end: 20190802
  6. DEXAMETHASONE [Concomitant]
     Active Substance: DEXAMETHASONE
     Dosage: UNK
     Dates: start: 20190808
  7. DEXAMETHASONE [Concomitant]
     Active Substance: DEXAMETHASONE
     Dosage: 4 MG, 2X/DAY
     Route: 048
     Dates: end: 20190926
  8. METOCLOPRAMIDE [Concomitant]
     Active Substance: METOCLOPRAMIDE
     Dosage: UNK
     Dates: start: 20190605
  9. ADVIL [Concomitant]
     Active Substance: IBUPROFEN
     Dosage: UNK, AS NEEDED
     Route: 048
  10. CHOLECALCIFEROL [Concomitant]
     Active Substance: CHOLECALCIFEROL
     Dosage: 1 DF, DAILY
     Route: 048
  11. FRANKINCENSE [Concomitant]
     Dosage: UNK
     Dates: end: 20190606
  12. FRANKINCENSE [Concomitant]
     Dosage: 4 DROP, DAILY
  13. TYLENOL [Concomitant]
     Active Substance: ACETAMINOPHEN
     Dosage: UNK, AS NEEDED
     Route: 048
  14. ACETAMINOPHEN [Concomitant]
     Active Substance: ACETAMINOPHEN
     Dosage: 500 MG, AS NEEDED
     Route: 048
     Dates: end: 20190705
  15. CODEINE PHOSPHATE/PSEUDOEPHEDRINE HYDROCHLORIDE/TRIPROLIDINE HYDROCHLO [Concomitant]
     Dosage: UNK, AS NEEDED
     Dates: end: 20190606
  16. LEMON [Concomitant]
     Active Substance: LEMON
     Dosage: UNK, AS NEEDED
     Dates: end: 20190606
  17. ACETAMINOPHEN\TRAMADOL [Concomitant]
     Active Substance: ACETAMINOPHEN\TRAMADOL
     Dosage: 1-2 TABLET 6X/D, AS NEEDED
     Route: 048
     Dates: end: 20191202
  18. MINERALS\VITAMINS [Concomitant]
     Active Substance: MINERALS\VITAMINS
     Dosage: 1 DF, DAILY
     Route: 048
     Dates: end: 20191104
  19. LEMON GRASS [Concomitant]
     Dosage: 2 DROP, DAILY (ESSENTIAL OIL)

REACTIONS (28)
  - Brain oedema [Unknown]
  - Pneumonia [Recovered/Resolved]
  - Neuropathy peripheral [Recovered/Resolved]
  - Neuropathy peripheral [Not Recovered/Not Resolved]
  - Urticaria [Recovered/Resolved]
  - Rash [Recovered/Resolved]
  - Vomiting [Recovered/Resolved]
  - Low density lipoprotein increased [Not Recovered/Not Resolved]
  - Non-high-density lipoprotein cholesterol increased [Not Recovered/Not Resolved]
  - Blood triglycerides increased [Not Recovered/Not Resolved]
  - Pain in extremity [Recovered/Resolved]
  - Oedema [Recovered/Resolved]
  - Musculoskeletal stiffness [Unknown]
  - Hypertriglyceridaemia [Unknown]
  - Hypercholesterolaemia [Unknown]
  - Weight increased [Not Recovered/Not Resolved]
  - Blood pressure increased [Not Recovered/Not Resolved]
  - Fatigue [Not Recovered/Not Resolved]
  - Blood cholesterol increased [Unknown]
  - Impaired quality of life [Unknown]
  - Peripheral swelling [Recovered/Resolved]
  - Illness [Unknown]
  - Skin lesion [Unknown]
  - Neoplasm progression [Unknown]
  - Dyspnoea [Unknown]
  - Vitreous floaters [Unknown]
  - Wound [Unknown]
  - COVID-19 [Unknown]

NARRATIVE: CASE EVENT DATE: 20191104
